FAERS Safety Report 18042007 (Version 1)
Quarter: 2020Q3

REPORT INFORMATION
  Report Type: Report from Study
  Country: US (occurrence: US)
  Receive Date: 20200720
  Receipt Date: 20200720
  Transmission Date: 20201103
  Serious: No
  Sender: FDA-Public Use
  Company Number: US-BIOVITRUM-2020US3756

PATIENT
  Age: 69 Year
  Sex: Male

DRUGS (5)
  1. COLCHICINE. [Concomitant]
     Active Substance: COLCHICINE
  2. SULFASALAZINE. [Concomitant]
     Active Substance: SULFASALAZINE
  3. METHOTREXATE. [Concomitant]
     Active Substance: METHOTREXATE
  4. KINERET [Suspect]
     Active Substance: ANAKINRA
     Indication: GOUT
     Route: 058
     Dates: start: 20200711
  5. HYDROCODONE [Concomitant]
     Active Substance: HYDROCODONE

REACTIONS (2)
  - Injection site pain [Unknown]
  - Off label use [Not Recovered/Not Resolved]

NARRATIVE: CASE EVENT DATE: 20200711
